FAERS Safety Report 23920422 (Version 2)
Quarter: 2024Q2

REPORT INFORMATION
  Report Type: Report from Study
  Country: US (occurrence: US)
  Receive Date: 20240530
  Receipt Date: 20240621
  Transmission Date: 20240716
  Serious: No
  Sender: FDA-Public Use
  Company Number: US-PARATEK PHARMACEUTICALS, INC.-2024PTK00410

PATIENT
  Sex: Female
  Weight: 45.351 kg

DRUGS (16)
  1. NUZYRA [Suspect]
     Active Substance: OMADACYCLINE
     Indication: Mycobacterium abscessus infection
     Dosage: 300 MG, 1X/DAY AT 2 AM
     Route: 048
     Dates: start: 20240430
  2. NUZYRA [Suspect]
     Active Substance: OMADACYCLINE
     Indication: Pneumonia bacterial
  3. NUZYRA [Suspect]
     Active Substance: OMADACYCLINE
     Indication: Sinusitis bacterial
  4. LINEZOLID [Suspect]
     Active Substance: LINEZOLID
     Dosage: UNK
  5. AMIKACIN [Suspect]
     Active Substance: AMIKACIN
     Dosage: UNK
  6. ASPIRIN [Concomitant]
     Active Substance: ASPIRIN
     Dosage: UNK
  7. LIDODERM [Concomitant]
     Active Substance: LIDOCAINE
  8. ONDANSETRON [Concomitant]
     Active Substance: ONDANSETRON
  9. UBRELVY [Concomitant]
     Active Substance: UBROGEPANT
  10. OMEPRAZOLE [Concomitant]
     Active Substance: DONEPEZIL HYDROCHLORIDE\OMEPRAZOLE\OMEPRAZOLE MAGNESIUM
  11. PROCHLORPERAZINE [Concomitant]
     Active Substance: PROCHLORPERAZINE
  12. AJOVY [Concomitant]
     Active Substance: FREMANEZUMAB-VFRM
  13. DICLOFENAC [Concomitant]
     Active Substance: DICLOFENAC
  14. BACLOFEN [Concomitant]
     Active Substance: BACLOFEN
  15. AMITRIPTYLINE [Concomitant]
     Active Substance: AMITRIPTYLINE
     Dosage: 300 MG, 1X/DAY
     Dates: start: 2016
  16. LACTULOSE [Concomitant]
     Active Substance: LACTULOSE

REACTIONS (13)
  - Eye swelling [Unknown]
  - Eye inflammation [Unknown]
  - Swelling face [Unknown]
  - Inflammation [Unknown]
  - Tooth discolouration [Not Recovered/Not Resolved]
  - Taste disorder [Not Recovered/Not Resolved]
  - Weight decreased [Not Recovered/Not Resolved]
  - Diarrhoea [Not Recovered/Not Resolved]
  - Nausea [Not Recovered/Not Resolved]
  - Vomiting [Not Recovered/Not Resolved]
  - Blood pressure increased [Unknown]
  - Off label use [Not Recovered/Not Resolved]
  - Incorrect product administration duration [Not Recovered/Not Resolved]

NARRATIVE: CASE EVENT DATE: 20240101
